FAERS Safety Report 8993137 (Version 1)
Quarter: 2013Q1

REPORT INFORMATION
  Report Type: Report from Study
  Country: DE (occurrence: DE)
  Receive Date: 20130102
  Receipt Date: 20130102
  Transmission Date: 20140127
  Serious: Yes (Life-Threatening, Hospitalization)
  Sender: FDA-Public Use
  Company Number: DE-ROCHE-1175611

PATIENT
  Age: 54 Year
  Sex: Male

DRUGS (7)
  1. ALTEPLASE [Suspect]
     Indication: ACUTE MYOCARDIAL INFARCTION
     Route: 042
     Dates: start: 19940530, end: 19940530
  2. HEPARIN [Concomitant]
     Indication: MYOCARDIAL INFARCTION
     Route: 042
     Dates: start: 19940530, end: 19940530
  3. HEPARIN [Concomitant]
     Dosage: 5000 U
     Route: 042
     Dates: start: 19940530, end: 19940530
  4. SODIUM BICARBONATE [Concomitant]
     Route: 042
     Dates: start: 19940530, end: 19940530
  5. MUCOSOLVAN [Concomitant]
     Dosage: 6 ANZ
     Route: 042
     Dates: start: 19940530, end: 19940608
  6. ASA [Concomitant]
     Indication: MYOCARDIAL INFARCTION
     Route: 042
     Dates: start: 19940530, end: 19940530
  7. SOSTRIL [Concomitant]
     Dosage: 1 ANZ
     Route: 042
     Dates: start: 19940530, end: 19940608

REACTIONS (5)
  - Myocardial infarction [Unknown]
  - Electrocardiogram ST segment elevation [Unknown]
  - Cardiogenic shock [Unknown]
  - Pulseless electrical activity [Unknown]
  - Cardiac arrest [Unknown]
